FAERS Safety Report 16760160 (Version 2)
Quarter: 2020Q3

REPORT INFORMATION
  Report Type: Spontaneous
  Country: US (occurrence: US)
  Receive Date: 20190830
  Receipt Date: 20200714
  Transmission Date: 20201102
  Serious: No
  Sender: FDA-Public Use
  Company Number: US-PFIZER INC-2019370468

PATIENT
  Age: 15 Year
  Sex: Male

DRUGS (1)
  1. EUCRISA [Suspect]
     Active Substance: CRISABOROLE
     Indication: DERMATITIS ATOPIC
     Dosage: UNK, 2X/DAY (DOSAGE FORM: 60 GM) (DOSAGE INTERVAL (SIG): APPLY TO AFFECT AREA BID (TWICE A DAY)

REACTIONS (1)
  - Drug ineffective [Unknown]
